FAERS Safety Report 13209735 (Version 1)
Quarter: 2017Q1

REPORT INFORMATION
  Report Type: Spontaneous
  Country: US (occurrence: US)
  Receive Date: 20170209
  Receipt Date: 20170209
  Transmission Date: 20170428
  Serious: No
  Sender: FDA-Public Use
  Company Number: US-ALLERGAN-1652581US

PATIENT
  Sex: Female

DRUGS (3)
  1. BOTOX [Suspect]
     Active Substance: ONABOTULINUMTOXINA
     Indication: MIGRAINE
     Dosage: 100 UNITS, SINGLE
     Route: 030
     Dates: start: 20150915, end: 20150915
  2. CELEBREX [Concomitant]
     Active Substance: CELECOXIB
     Indication: INFLAMMATION
     Route: 048
  3. BOTOX [Suspect]
     Active Substance: ONABOTULINUMTOXINA
     Dosage: 100 UNITS, SINGLE
     Route: 030
     Dates: start: 20160113, end: 20160113

REACTIONS (5)
  - Abnormal sensation in eye [Not Recovered/Not Resolved]
  - Hypoaesthesia [Recovered/Resolved]
  - Periorbital oedema [Not Recovered/Not Resolved]
  - Eyelid ptosis [Recovered/Resolved]
  - Facial nerve disorder [Not Recovered/Not Resolved]
